FAERS Safety Report 7218140-0 (Version None)
Quarter: 2011Q1

REPORT INFORMATION
  Report Type: 
  Country: None (occurrence: None)
  Receive Date: 20110110
  Receipt Date: 20101229
  Transmission Date: 20110831
  Serious: Yes (Disabling, Other)
  Sender: FDA-Public Use
  Company Number: US-ACTELION-A-NJ2010-41789

PATIENT

DRUGS (9)
  1. DILTIAZEM [Concomitant]
  2. SIMVASTATIN [Concomitant]
  3. BOSENTAN TABLET 125 MG US [Suspect]
     Indication: PULMONARY ARTERIAL HYPERTENSION
     Dosage: 125 MG, BID
     Route: 048
     Dates: start: 20100101, end: 20101122
  4. LEVOTHYROXINE [Concomitant]
  5. BOSENTAN TABLET 125 MG US [Suspect]
     Dosage: 62.5 MG, BID
     Route: 048
     Dates: start: 20101101, end: 20101213
  6. ADVAIR [Concomitant]
  7. GABAPENTIN [Concomitant]
  8. BOSENTAN TABLET 125 MG US [Suspect]
     Dosage: 62.5 MG, BID
     Route: 048
     Dates: start: 20100915, end: 20100101
  9. PREMARIN [Concomitant]

REACTIONS (3)
  - DYSPNOEA [None]
  - RHINORRHOEA [None]
  - CHEST DISCOMFORT [None]
